FAERS Safety Report 11778572 (Version 2)
Quarter: 2016Q1

REPORT INFORMATION
  Report Type: Report from Study
  Country: CA (occurrence: CA)
  Receive Date: 20151125
  Receipt Date: 20160129
  Transmission Date: 20160525
  Serious: Yes (Other)
  Sender: FDA-Public Use
  Company Number: CA-ABBVIE-15K-028-1505361-00

PATIENT
  Sex: Male
  Weight: 83.99 kg

DRUGS (4)
  1. ORENCIA [Concomitant]
     Active Substance: ABATACEPT
     Indication: PRODUCT USED FOR UNKNOWN INDICATION
     Dates: start: 201508
  2. HUMIRA [Suspect]
     Active Substance: ADALIMUMAB
     Indication: RHEUMATOID ARTHRITIS
     Route: 058
     Dates: start: 201102, end: 201506
  3. METHOTREXATE [Concomitant]
     Active Substance: METHOTREXATE
     Indication: PRODUCT USED FOR UNKNOWN INDICATION
     Dates: start: 201508
  4. CANDESARTAN [Concomitant]
     Active Substance: CANDESARTAN
     Indication: HYPERTENSION

REACTIONS (2)
  - Hypoaesthesia [Recovering/Resolving]
  - Brain injury [Unknown]

NARRATIVE: CASE EVENT DATE: 2015
